FAERS Safety Report 8237079-5 (Version None)
Quarter: 2012Q1

REPORT INFORMATION
  Report Type: 
  Country: None (occurrence: None)
  Receive Date: 20120327
  Receipt Date: 20120321
  Transmission Date: 20120608
  Serious: Yes (Other)
  Sender: FDA-Public Use
  Company Number: CH-PFIZER INC-2012074146

PATIENT
  Age: 68 Year
  Sex: Male

DRUGS (1)
  1. SUTENT [Suspect]
     Indication: METASTATIC RENAL CELL CARCINOMA
     Dosage: 25 MG PER DAY, CYCLIC (CYCLICALLY 4 WEEKS TREATMENT FOLLOWED BY 2 WEEK BREAK)
     Dates: start: 20110601, end: 20110701

REACTIONS (1)
  - BONE MARROW TOXICITY [None]
